FAERS Safety Report 25996694 (Version 1)
Quarter: 2025Q4

REPORT INFORMATION
  Report Type: Other
  Country: US (occurrence: US)
  Receive Date: 20251104
  Receipt Date: 20251104
  Transmission Date: 20260117
  Serious: No
  Sender: SIGMA TAU
  Company Number: US-LEADIANT BIOSCIENCES, INC.-2025LBI000020

PATIENT
  Sex: Female

DRUGS (1)
  1. CYSTARAN [Suspect]
     Active Substance: CYSTEAMINE HYDROCHLORIDE
     Indication: Corneal deposits
     Dosage: INSTILL 1 DROP INTO BOTH EYES FOUR TIMES DAILY
     Route: 047
     Dates: start: 20230808

REACTIONS (1)
  - Photophobia [Unknown]
